FAERS Safety Report 21914701 (Version 1)
Quarter: 2023Q1

REPORT INFORMATION
  Report Type: Spontaneous
  Country: FR (occurrence: FR)
  Receive Date: 20230126
  Receipt Date: 20230126
  Transmission Date: 20230418
  Serious: Yes (Life-Threatening, Other)
  Sender: FDA-Public Use
  Company Number: None

PATIENT
  Age: 71 Year
  Sex: Male
  Weight: 83 kg

DRUGS (3)
  1. OPDIVO [Suspect]
     Active Substance: NIVOLUMAB
     Indication: Oesophageal carcinoma
     Route: 042
     Dates: start: 20221215
  2. FLUOROURACIL [Suspect]
     Active Substance: FLUOROURACIL
     Indication: Oesophageal carcinoma
     Dosage: 4400MG
     Route: 042
     Dates: start: 20221215
  3. OXALIPLATIN [Suspect]
     Active Substance: OXALIPLATIN
     Indication: Oesophageal carcinoma
     Route: 042
     Dates: start: 20221215

REACTIONS (2)
  - Cardio-respiratory arrest [Recovered/Resolved]
  - Ventricular hypokinesia [Unknown]

NARRATIVE: CASE EVENT DATE: 20221217
